FAERS Safety Report 18627755 (Version 2)
Quarter: 2020Q4

REPORT INFORMATION
  Report Type: Report from Study
  Country: AU (occurrence: AU)
  Receive Date: 20201217
  Receipt Date: 20201229
  Transmission Date: 20210114
  Serious: Yes (Hospitalization)
  Sender: FDA-Public Use
  Company Number: AU-PFIZER INC-2020477275

PATIENT
  Age: 68 Year
  Sex: Female

DRUGS (19)
  1. VITAMINE D [Concomitant]
     Active Substance: CHOLECALCIFEROL
     Indication: OSTEOARTHRITIS
     Dosage: 1 DF, DAILY
     Route: 048
  2. SYMBICORT [Concomitant]
     Active Substance: BUDESONIDE\FORMOTEROL FUMARATE DIHYDRATE
     Indication: ASTHMA
     Dosage: 2 UNK
     Dates: start: 20201111
  3. EYE DROPS [NAPHAZOLINE HYDROCHLORIDE] [Concomitant]
     Indication: DRY EYE
     Dosage: UNK, AS NEEDED
     Dates: start: 20201013
  4. PREGABALIN. [Concomitant]
     Active Substance: PREGABALIN
     Indication: RESTLESS LEGS SYNDROME
     Dosage: 50 MG, DAILY
     Route: 048
     Dates: start: 2014
  5. MIRABEGRON [Concomitant]
     Active Substance: MIRABEGRON
     Indication: BLADDER DISORDER
     Dosage: 50 MG, DAILY
     Route: 048
  6. ENCORAFENIB [Suspect]
     Active Substance: ENCORAFENIB
     Indication: METASTATIC MALIGNANT MELANOMA
     Dosage: 300 MG, DAILY
     Route: 048
     Dates: start: 20201029
  7. DESVENLAFAXINE. [Concomitant]
     Active Substance: DESVENLAFAXINE
     Indication: AFFECTIVE DISORDER
     Dosage: 100 MG, DAILY
     Route: 048
  8. HIPREX [CHLORTALIDONE] [Concomitant]
     Dosage: 1000 MG, 2X/DAY
     Dates: start: 2018
  9. PREXUM [Concomitant]
     Active Substance: PERINDOPRIL ERBUMINE
     Indication: HYPERTENSION
     Dosage: 10 MG, DAILY
     Route: 048
  10. STEMETIL [PROCHLORPERAZINE EDISYLATE] [Concomitant]
     Active Substance: PROCHLORPERAZINE EDISYLATE
     Indication: VOMITING
  11. PALBOCICLIB [Suspect]
     Active Substance: PALBOCICLIB
     Dosage: 75 MG
     Dates: start: 20201029
  12. OVESTIN [Concomitant]
     Active Substance: ESTRIOL
     Indication: BLADDER DISORDER
     Dosage: 1 DF
     Route: 061
     Dates: start: 2016
  13. BINIMETINIB [Suspect]
     Active Substance: BINIMETINIB
     Indication: METASTATIC MALIGNANT MELANOMA
     Dosage: 30 MG, 2X/DAY
     Dates: start: 20201029
  14. RHINOCORT [Concomitant]
     Active Substance: BUDESONIDE
     Indication: SEASONAL ALLERGY
     Dosage: UNK, AS NEEDED
     Dates: start: 1980
  15. ESOMEPRAZOLE. [Concomitant]
     Active Substance: ESOMEPRAZOLE MAGNESIUM
     Indication: GASTROOESOPHAGEAL REFLUX DISEASE
     Dosage: UNK
  16. MALTOFER FOL [Concomitant]
     Active Substance: FOLIC ACID\IRON POLYMALTOSE
     Dosage: 370 MG, DAILY
  17. SIFROL [Concomitant]
     Active Substance: PRAMIPEXOLE
     Indication: RESTLESS LEGS SYNDROME
     Dosage: 25 MG
     Route: 048
     Dates: start: 2016
  18. XALATAN [Concomitant]
     Active Substance: LATANOPROST
     Indication: BORDERLINE GLAUCOMA
     Dosage: UNK, AS NEEDED
     Dates: start: 20180201
  19. STEMETIL [PROCHLORPERAZINE EDISYLATE] [Concomitant]
     Active Substance: PROCHLORPERAZINE EDISYLATE
     Indication: NAUSEA
     Dosage: 5 MG, 3X/DAY
     Route: 048
     Dates: start: 20201109

REACTIONS (1)
  - Hyponatraemia [Recovered/Resolved]

NARRATIVE: CASE EVENT DATE: 20201202
